FAERS Safety Report 8589168-3 (Version None)
Quarter: 2012Q2

REPORT INFORMATION
  Report Type: 
  Country: None (occurrence: None)
  Receive Date: 20120423
  Receipt Date: 20090709
  Transmission Date: 20120825
  Serious: Yes (Other)
  Sender: FDA-Public Use
  Company Number: PHEH2009US07379

PATIENT
  Age: 84 Year
  Sex: Female
  Weight: 67.1 kg

DRUGS (5)
  1. ALENDRONATE SODIUM [Concomitant]
  2. PREDNISONE TAB [Concomitant]
  3. HYDROCHLOROTHIAZIDE [Concomitant]
  4. FEMARA [Suspect]
     Indication: BREAST CANCER
     Dosage: 2.5 , QD, ORAL
     Route: 048
     Dates: start: 20090301, end: 20090601
  5. TRIAMTERENE [Concomitant]

REACTIONS (5)
  - DIZZINESS [None]
  - MALAISE [None]
  - HYPERTENSION [None]
  - NAUSEA [None]
  - ASTHENIA [None]
